FAERS Safety Report 20952481 (Version 1)
Quarter: 2022Q2

REPORT INFORMATION
  Report Type: Spontaneous
  Country: CN (occurrence: CN)
  Receive Date: 20220613
  Receipt Date: 20220613
  Transmission Date: 20220721
  Serious: Yes (Other)
  Sender: FDA-Public Use
  Company Number: None

PATIENT
  Age: 68 Year
  Sex: Male
  Weight: 59.2 kg

DRUGS (4)
  1. CYCLOPHOSPHAMIDE [Suspect]
     Active Substance: CYCLOPHOSPHAMIDE
     Indication: Non-Hodgkin^s lymphoma
     Dosage: 1.0G,QD, CYCLOPHOSPHAMIDE (1G) + 0.9% SODIUM CHLORIDE INJECTION (100ML)
     Route: 041
     Dates: start: 20220517, end: 20220517
  2. SODIUM CHLORIDE [Suspect]
     Active Substance: SODIUM CHLORIDE
     Indication: Medication dilution
     Dosage: 100 ML, QD, CYCLOPHOSPHAMIDE (1G) + 0.9% SODIUM CHLORIDE INJECTION (100ML)
     Route: 041
     Dates: start: 20220517, end: 20220517
  3. SODIUM CHLORIDE [Suspect]
     Active Substance: SODIUM CHLORIDE
     Dosage: 10 ML, QD, VINCRISTINE SULFATE 2MG + 0.9% SODIUM CHLORIDE 10ML, INTRAVENOUS PUSH
     Route: 042
     Dates: start: 20220517, end: 20220517
  4. VINCRISTINE SULFATE [Suspect]
     Active Substance: VINCRISTINE SULFATE
     Indication: Non-Hodgkin^s lymphoma
     Dosage: 2 MG, QD, VINCRISTINE SULFATE 2MG + 0.9% SODIUM CHLORIDE 10ML, INTRAVENOUS PUSH
     Route: 042
     Dates: start: 20220517, end: 20220517

REACTIONS (2)
  - Cytopenia [Recovering/Resolving]
  - Myelosuppression [Recovering/Resolving]

NARRATIVE: CASE EVENT DATE: 20220521
